FAERS Safety Report 17559900 (Version 1)
Quarter: 2020Q1

REPORT INFORMATION
  Report Type: Spontaneous
  Country: DE (occurrence: DE)
  Receive Date: 20200319
  Receipt Date: 20200319
  Transmission Date: 20200409
  Serious: Yes (Other)
  Sender: FDA-Public Use
  Company Number: DE-REGENERON PHARMACEUTICALS, INC.-2020-25347

PATIENT

DRUGS (2)
  1. EYLEA [Suspect]
     Active Substance: AFLIBERCEPT
     Indication: PRODUCT USED FOR UNKNOWN INDICATION
     Dosage: 1 DF, ONCE INTO RIGHT EYE
     Route: 031
     Dates: start: 20200204, end: 20200204
  2. EYLEA [Suspect]
     Active Substance: AFLIBERCEPT
     Dosage: 1 DF, ONCE INTO LEFT EYE
     Route: 031
     Dates: start: 20200218, end: 20200218

REACTIONS (5)
  - Injection site haemorrhage [Not Recovered/Not Resolved]
  - Multiple use of single-use product [Unknown]
  - Headache [Unknown]
  - Eye infection [Unknown]
  - Feeling abnormal [Unknown]

NARRATIVE: CASE EVENT DATE: 20200218
